FAERS Safety Report 5779658-0 (Version None)
Quarter: 2008Q2

REPORT INFORMATION
  Report Type: 
  Country: None (occurrence: None)
  Receive Date: 20080619
  Receipt Date: 20080613
  Transmission Date: 20081010
  Serious: Yes (Other)
  Sender: FDA-Public Use
  Company Number: JP-PFIZER INC-2008050545

PATIENT
  Age: 79 Year
  Sex: Male

DRUGS (1)
  1. ATARAX [Suspect]
     Route: 048

REACTIONS (1)
  - BLOOD PRESSURE DECREASED [None]
